FAERS Safety Report 6785692-4 (Version None)
Quarter: 2010Q2

REPORT INFORMATION
  Report Type: 
  Country: None (occurrence: None)
  Receive Date: 20100621
  Receipt Date: 20100621
  Transmission Date: 20101027
  Serious: Yes (Hospitalization)
  Sender: FDA-Public Use
  Company Number: None

PATIENT
  Age: 67 Year
  Weight: 129 kg

DRUGS (22)
  1. HEPARIN [Suspect]
     Indication: ATRIAL FIBRILLATION
     Dosage: 5000UNITS Q8 SQ   CHRONIC
     Route: 058
  2. CIPRO [Concomitant]
  3. INSULIN [Concomitant]
  4. HEPARIN [Concomitant]
  5. METOCLOPRAMIDE [Concomitant]
  6. NEXIUM [Concomitant]
  7. SIMVASTIN [Concomitant]
  8. VIT C [Concomitant]
  9. HYDROCODONE BITARTRATE AND ACETAMINOPHEN [Concomitant]
  10. ONDASETRON [Concomitant]
  11. PHENERGAN [Concomitant]
  12. COMBIVENT [Concomitant]
  13. APRIA [Concomitant]
  14. VIT D [Concomitant]
  15. M.V.I. [Concomitant]
  16. EFFEXOR [Concomitant]
  17. IRON SULFATETHIAMIN COMPOUND TAB [Concomitant]
  18. NORVASC [Concomitant]
  19. DARBEPOETIN [Concomitant]
  20. SEROQUEL [Concomitant]
  21. ZOLPIDEM [Concomitant]
  22. LORAZEPAM [Concomitant]

REACTIONS (3)
  - DIVERTICULUM [None]
  - FAECALOMA [None]
  - NEOPLASM MALIGNANT [None]
